FAERS Safety Report 4715814-8 (Version None)
Quarter: 2005Q3

REPORT INFORMATION
  Report Type: 
  Country: None (occurrence: None)
  Receive Date: 20050715
  Receipt Date: 20050715
  Transmission Date: 20060218
  Serious: Yes (Hospitalization)
  Sender: FDA-Public Use
  Company Number: None

PATIENT
  Sex: Female
  Weight: 108.6365 kg

DRUGS (9)
  1. GEODON [Suspect]
     Indication: BIPOLAR I DISORDER
     Dosage: 40 MG AM/120 MG PM PO
     Route: 048
     Dates: start: 20050620
  2. XANAX XR [Concomitant]
  3. MULTI-VITAMIN [Concomitant]
  4. HYDROCODONE BITARTRATE [Concomitant]
  5. IMITREX [Concomitant]
  6. COLONITE [Concomitant]
  7. ALBUTEROL [Concomitant]
  8. SONATA [Concomitant]
  9. HYDROCHOROT [Concomitant]

REACTIONS (4)
  - BLOOD TEST ABNORMAL [None]
  - CHOLECYSTITIS [None]
  - HEPATIC ENZYME INCREASED [None]
  - PANCREATITIS [None]
